FAERS Safety Report 7756676-4 (Version None)
Quarter: 2011Q3

REPORT INFORMATION
  Report Type: 
  Country: None (occurrence: None)
  Receive Date: 20110916
  Receipt Date: 20110914
  Transmission Date: 20111222
  Serious: Yes (Other)
  Sender: FDA-Public Use
  Company Number: DE-SANOFI-AVENTIS-2011SA059640

PATIENT
  Age: 63 Year
  Sex: Female
  Weight: 80 kg

DRUGS (1)
  1. OXALIPLATIN [Suspect]
     Indication: COLON CANCER
     Route: 041
     Dates: start: 20110829, end: 20110829

REACTIONS (10)
  - NAUSEA [None]
  - PALPITATIONS [None]
  - DYSPNOEA [None]
  - RASH MACULAR [None]
  - LOCAL SWELLING [None]
  - SWELLING FACE [None]
  - FLUSHING [None]
  - BLOOD PRESSURE DECREASED [None]
  - HYPERHIDROSIS [None]
  - ECZEMA [None]
